FAERS Safety Report 9284321 (Version 1)
Quarter: 2013Q2

REPORT INFORMATION
  Report Type: Spontaneous
  Country: FR (occurrence: FR)
  Receive Date: 20130510
  Receipt Date: 20130510
  Transmission Date: 20140414
  Serious: Yes (Hospitalization, Other)
  Sender: FDA-Public Use
  Company Number: FR-PFIZER INC-2013135196

PATIENT
  Age: 69 Year
  Sex: Female

DRUGS (9)
  1. DALACINE [Suspect]
     Indication: STREPTOCOCCAL INFECTION
     Dosage: 600 MG, 3X/DAY
     Route: 042
     Dates: start: 20130322, end: 20130330
  2. DALACINE [Suspect]
     Indication: EXTRADURAL ABSCESS
  3. DALACINE [Suspect]
     Indication: STREPTOCOCCAL INFECTION
     Dosage: 600 MG, 3X/DAY
     Route: 048
     Dates: start: 20130330, end: 20130412
  4. EUPANTOL [Suspect]
     Dosage: 40 MG, 1X/DAY
     Route: 048
     Dates: start: 20130322, end: 20130412
  5. CEFTRIAXONE [Suspect]
     Indication: STREPTOCOCCAL INFECTION
     Dosage: 3 G, 2X/DAY
     Route: 042
     Dates: start: 20130321, end: 20130418
  6. CEFTRIAXONE [Suspect]
     Indication: EXTRADURAL ABSCESS
  7. LAROXYL [Suspect]
     Dosage: 12.5 MG, 1X/DAY (STRENGTH- 50 MG/2 ML)
     Route: 042
     Dates: start: 20130326, end: 20130409
  8. RIVOTRIL [Concomitant]
     Dosage: 3 DROPS, EVERY 4 HOURS
     Route: 048
     Dates: start: 20130323
  9. DAFALGAN [Concomitant]
     Indication: ANALGESIC THERAPY
     Dosage: UNK

REACTIONS (1)
  - Agranulocytosis [Recovered/Resolved]
